FAERS Safety Report 10643302 (Version 1)
Quarter: 2014Q4

REPORT INFORMATION
  Report Type: Spontaneous
  Country: US (occurrence: None)
  Receive Date: 20141121
  Receipt Date: 20141121
  Transmission Date: 20150529
  Serious: Yes (Other)
  Sender: FDA-Public Use
  Company Number: 163-10004-14060992

PATIENT
  Age: 67 Year
  Sex: Female
  Weight: 88.45 kg

DRUGS (7)
  1. CO-Q 10 (UBIDECARENONE) [Concomitant]
  2. OTEZLA [Suspect]
     Active Substance: APREMILAST
     Indication: PSORIATIC ARTHROPATHY
     Dosage: 60 MG, 2 IN 1 D, PO
     Route: 048
     Dates: start: 20140430, end: 20140513
  3. VITAMIN D (ERGOCALCIFEROL)? [Concomitant]
  4. B 12 (CYANOCOBALAMIN) [Concomitant]
  5. IBUPROFEN (IBUPROFEN) [Concomitant]
     Active Substance: IBUPROFEN
  6. CYMBALTA [Concomitant]
     Active Substance: DULOXETINE HYDROCHLORIDE
  7. ATIVAN [Concomitant]
     Active Substance: LORAZEPAM

REACTIONS (2)
  - Abdominal discomfort [None]
  - Diarrhoea [None]
